FAERS Safety Report 12913303 (Version 8)
Quarter: 2017Q3

REPORT INFORMATION
  Report Type: Report from Study
  Country: US (occurrence: US)
  Receive Date: 20161104
  Receipt Date: 20170802
  Transmission Date: 20171127
  Serious: Yes (Other)
  Sender: FDA-Public Use
  Company Number: US-ACTELION-A-US2016-144894

PATIENT
  Age: 59 Year
  Sex: Female

DRUGS (18)
  1. NORVASC [Concomitant]
     Active Substance: AMLODIPINE BESYLATE
  2. FOLIC ACID. [Concomitant]
     Active Substance: FOLIC ACID
  3. SEVELAMER [Concomitant]
     Active Substance: SEVELAMER
  4. PRORENAL VITAL [Concomitant]
  5. OPSUMIT [Suspect]
     Active Substance: MACITENTAN
     Indication: PULMONARY ARTERIAL HYPERTENSION
     Dosage: 10 MG, QD
     Route: 048
     Dates: start: 20160516
  6. RENVELA [Concomitant]
     Active Substance: SEVELAMER CARBONATE
  7. UPTRAVI [Suspect]
     Active Substance: SELEXIPAG
     Dosage: UNK MCG, UNK
     Route: 048
     Dates: start: 20160711
  8. UPTRAVI [Suspect]
     Active Substance: SELEXIPAG
     Dosage: 1200 MCG, BID
     Route: 048
     Dates: start: 20160711, end: 20170525
  9. GLIPIZIDE. [Concomitant]
     Active Substance: GLIPIZIDE
  10. SELEXIPAG [Concomitant]
     Active Substance: SELEXIPAG
  11. LOMOTIL [Concomitant]
     Active Substance: ATROPINE SULFATE\DIPHENOXYLATE HYDROCHLORIDE
  12. UPTRAVI [Suspect]
     Active Substance: SELEXIPAG
     Indication: PULMONARY ARTERIAL HYPERTENSION
     Dosage: 1400 MCG, BID
     Route: 048
  13. COREG [Concomitant]
     Active Substance: CARVEDILOL
  14. NEXIUM [Concomitant]
     Active Substance: ESOMEPRAZOLE MAGNESIUM
  15. OXYGEN. [Concomitant]
     Active Substance: OXYGEN
  16. AMBIEN [Concomitant]
     Active Substance: ZOLPIDEM TARTRATE
  17. ZOLOFT [Concomitant]
     Active Substance: SERTRALINE HYDROCHLORIDE
  18. AMLODIPINE [Concomitant]
     Active Substance: AMLODIPINE BESYLATE

REACTIONS (16)
  - Blood pressure decreased [Recovering/Resolving]
  - Dehydration [Unknown]
  - Headache [Unknown]
  - Vomiting [Not Recovered/Not Resolved]
  - Anxiety [Unknown]
  - Dialysis [Unknown]
  - Dyspnoea [Unknown]
  - Hallucination [Unknown]
  - Myalgia [Unknown]
  - Pain [Unknown]
  - Vision blurred [Unknown]
  - Weight increased [Unknown]
  - Diarrhoea [Not Recovered/Not Resolved]
  - Nausea [Unknown]
  - Hypertension [Unknown]
  - Blood glucose abnormal [Unknown]

NARRATIVE: CASE EVENT DATE: 20160712
